FAERS Safety Report 5345097-X (Version None)
Quarter: 2007Q2

REPORT INFORMATION
  Report Type: 
  Country: None (occurrence: None)
  Receive Date: 20070601
  Receipt Date: 20070521
  Transmission Date: 20071010
  Serious: Yes (Other)
  Sender: FDA-Public Use
  Company Number: GXKR2007JP03033

PATIENT
  Age: 38 Year
  Sex: Male
  Weight: 56 kg

DRUGS (4)
  1. ISONIAZID [Suspect]
     Indication: TUBERCULOSIS
     Dosage: 300 MG
  2. ETHAMBUTOL HYDROCHLORIDE [Suspect]
     Indication: TUBERCULOSIS
     Dosage: 750 MG PER DAY
  3. RIFAMPICIN [Suspect]
     Indication: TUBERCULOSIS
     Dosage: 450 MG, ORAL
     Route: 048
  4. PYRAZINAMIDE [Concomitant]

REACTIONS (17)
  - ABDOMINAL PAIN [None]
  - ARTHRALGIA [None]
  - BIOPSY SKIN ABNORMAL [None]
  - BLOOD IMMUNOGLOBULIN A INCREASED [None]
  - ERYTHEMA [None]
  - GLOMERULONEPHRITIS PROLIFERATIVE [None]
  - HAEMATURIA [None]
  - HENOCH-SCHONLEIN PURPURA [None]
  - IMMUNE SYSTEM DISORDER [None]
  - LEUKOCYTOCLASTIC VASCULITIS [None]
  - NECROSIS [None]
  - PALPABLE PURPURA [None]
  - PROTEINURIA [None]
  - PYREXIA [None]
  - RASH [None]
  - SKIN LESION [None]
  - URINARY CASTS [None]
